FAERS Safety Report 7366497-2 (Version None)
Quarter: 2011Q1

REPORT INFORMATION
  Report Type: 
  Country: None (occurrence: None)
  Receive Date: 20110322
  Receipt Date: 20110308
  Transmission Date: 20110831
  Serious: Yes (Other)
  Sender: FDA-Public Use
  Company Number: US-BAYER-2011-006458

PATIENT
  Sex: Female
  Weight: 50.34 kg

DRUGS (3)
  1. YASMIN [Suspect]
     Indication: PREMENSTRUAL SYNDROME
     Dosage: UNK
     Route: 048
     Dates: start: 20050101
  2. YASMIN [Suspect]
     Indication: MENORRHAGIA
  3. YAZ [Suspect]
     Indication: PRODUCT USED FOR UNKNOWN INDICATION
     Dosage: UNK
     Route: 048

REACTIONS (19)
  - CHOLELITHIASIS [None]
  - NAUSEA [None]
  - WEIGHT DECREASED [None]
  - CHEST PAIN [None]
  - DYSPNOEA [None]
  - HYPERTENSION [None]
  - DYSPEPSIA [None]
  - VOMITING [None]
  - CHOLECYSTITIS [None]
  - ALOPECIA [None]
  - BLOOD GLUCOSE INCREASED [None]
  - ABDOMINAL PAIN UPPER [None]
  - RECTAL HAEMORRHAGE [None]
  - DIARRHOEA [None]
  - TACHYCARDIA [None]
  - GASTROENTERITIS [None]
  - GALLBLADDER INJURY [None]
  - ABDOMINAL DISTENSION [None]
  - PNEUMONITIS [None]
